FAERS Safety Report 19247373 (Version 2)
Quarter: 2021Q3

REPORT INFORMATION
  Report Type: Spontaneous
  Country: US (occurrence: US)
  Receive Date: 20210512
  Receipt Date: 20210920
  Transmission Date: 20211014
  Serious: Yes (Other)
  Sender: FDA-Public Use
  Company Number: US-HIKMA PHARMACEUTICALS USA INC.-US-H14001-21-01822

PATIENT
  Sex: Female

DRUGS (1)
  1. FLUTICASONE. [Suspect]
     Active Substance: FLUTICASONE
     Indication: COUGH
     Dosage: TWO SPRAY INTO EACH NOSTRIL
     Route: 045

REACTIONS (5)
  - Product dose omission issue [Not Recovered/Not Resolved]
  - Dysarthria [Unknown]
  - Incorrect route of product administration [Unknown]
  - Diabetes mellitus [Unknown]
  - Migraine [Unknown]
